FAERS Safety Report 10158392 (Version 2)
Quarter: 2014Q2

REPORT INFORMATION
  Report Type: Spontaneous
  Country: US (occurrence: US)
  Receive Date: 20140507
  Receipt Date: 20140522
  Transmission Date: 20141212
  Serious: No
  Sender: FDA-Public Use
  Company Number: US-GILEAD-2014-0101828

PATIENT
  Age: 78 Year
  Sex: Male

DRUGS (14)
  1. LETAIRIS [Suspect]
     Indication: PULMONARY HYPERTENSION
     Dosage: 10 MG, QD
     Route: 065
     Dates: start: 20140408
  2. LETAIRIS [Suspect]
     Dosage: 5 MG, QD
     Route: 065
  3. CYANOCOBALAMIN [Concomitant]
  4. CEPHALEXIN                         /00145501/ [Concomitant]
  5. LOTREL [Concomitant]
  6. NORTRIPTYLINE [Concomitant]
  7. FUROSEMIDE [Concomitant]
  8. FISH OIL [Concomitant]
  9. L-LYSINE                           /00919901/ [Concomitant]
  10. DIAZEPAM [Concomitant]
  11. METOPROLOL SUCCINATE [Concomitant]
  12. ASPIRIN [Concomitant]
  13. PLAVIX [Concomitant]
  14. ZETIA [Concomitant]

REACTIONS (3)
  - Headache [Unknown]
  - Dizziness [Recovered/Resolved]
  - Nausea [Recovered/Resolved]
